FAERS Safety Report 15165444 (Version 2)
Quarter: 2018Q3

REPORT INFORMATION
  Report Type: Spontaneous
  Country: US (occurrence: US)
  Receive Date: 20180719
  Receipt Date: 20180730
  Transmission Date: 20181010
  Serious: Yes (Other)
  Sender: FDA-Public Use
  Company Number: US-AMGEN-USASP2018087494

PATIENT
  Age: 78 Year
  Sex: Female
  Weight: 49.89 kg

DRUGS (2)
  1. PROLIA [Suspect]
     Active Substance: DENOSUMAB
     Indication: OSTEOPOROSIS POSTMENOPAUSAL
     Dosage: 60 MG, UNK
     Route: 058
     Dates: start: 20170717
  2. CALCIUM [Concomitant]
     Active Substance: CALCIUM
     Dosage: UNK

REACTIONS (11)
  - Rash pruritic [Not Recovered/Not Resolved]
  - Anosmia [Recovered/Resolved]
  - Erythema [Not Recovered/Not Resolved]
  - Bone pain [Recovered/Resolved]
  - Sleep disorder due to a general medical condition [Unknown]
  - Dry throat [Recovering/Resolving]
  - Skin discolouration [Unknown]
  - Groin pain [Recovered/Resolved]
  - Rhinorrhoea [Recovering/Resolving]
  - Arthralgia [Recovered/Resolved]
  - Ill-defined disorder [Unknown]

NARRATIVE: CASE EVENT DATE: 201801
